FAERS Safety Report 4944945-2 (Version None)
Quarter: 2006Q1

REPORT INFORMATION
  Report Type: 
  Country: None (occurrence: None)
  Receive Date: 20060117
  Receipt Date: 20050926
  Transmission Date: 20060701
  Serious: Yes (Hospitalization)
  Sender: FDA-Public Use
  Company Number: 2005-BP-16978RO

PATIENT
  Age: 44 Year
  Sex: Male

DRUGS (3)
  1. LITHIUM CARBONATE [Suspect]
     Indication: BIPOLAR DISORDER
     Dosage: 600 MG BID (600 MG), PO
     Route: 048
     Dates: start: 20050704, end: 20050716
  2. SEROQUEL [Concomitant]
  3. RISPERDAL [Concomitant]

REACTIONS (4)
  - COORDINATION ABNORMAL [None]
  - SEDATION [None]
  - THERAPEUTIC AGENT TOXICITY [None]
  - TREMOR [None]
